FAERS Safety Report 4631031-4 (Version None)
Quarter: 2005Q2

REPORT INFORMATION
  Report Type: 
  Country: None (occurrence: None)
  Receive Date: 20050406
  Receipt Date: 20050317
  Transmission Date: 20051028
  Serious: Yes (Hospitalization, Other)
  Sender: FDA-Public Use
  Company Number: US_0503113776

PATIENT
  Age: 61 Year
  Sex: Female

DRUGS (13)
  1. ZYPREXA [Suspect]
     Indication: BIPOLAR DISORDER
     Dosage: 10 MG AT BEDTIME
     Dates: start: 20010529, end: 20040301
  2. SYNTHROID [Concomitant]
  3. SINGULAIR (MONTELUKAST) [Concomitant]
  4. ALLEGRA [Concomitant]
  5. GLUCOVANCE [Concomitant]
  6. ALLOPURINOL [Concomitant]
  7. LIPITOR [Concomitant]
  8. LISINOPRIL [Concomitant]
  9. AVANDIA [Concomitant]
  10. LITHOBID [Concomitant]
  11. DALMANE [Concomitant]
  12. DEPAKOTE [Concomitant]
  13. TRAZODONE HCL [Concomitant]

REACTIONS (12)
  - ASTHENIA [None]
  - BALANCE DISORDER [None]
  - CEREBRAL ATROPHY [None]
  - CONFUSIONAL STATE [None]
  - COUGH [None]
  - DIABETES MELLITUS [None]
  - HYPERSOMNIA [None]
  - HYPOVENTILATION [None]
  - HYPOXIA [None]
  - LETHARGY [None]
  - MENTAL IMPAIRMENT [None]
  - URINARY TRACT INFECTION [None]
